FAERS Safety Report 12506104 (Version 2)
Quarter: 2016Q3

REPORT INFORMATION
  Report Type: Report from Study
  Country: BE (occurrence: BE)
  Receive Date: 20160628
  Receipt Date: 20160718
  Transmission Date: 20161109
  Serious: Yes (Death, Other)
  Sender: FDA-Public Use
  Company Number: BE-ABBVIE-16P-013-1632421-00

PATIENT
  Age: 80 Year
  Sex: Male

DRUGS (16)
  1. DUODOPA [Suspect]
     Active Substance: CARBIDOPA\LEVODOPA
     Dosage: DOSES CONTINUOUSLY MONITORED AND ADAPTED
     Route: 050
     Dates: start: 20130604, end: 20131031
  2. DUODOPA [Suspect]
     Active Substance: CARBIDOPA\LEVODOPA
     Dosage: AM= 1ML;CD= 2.2 ML/H 16 HRS;ND= 1.0 ML/H 8 HRS;ED= 2.0 ML
     Route: 050
     Dates: start: 20160607, end: 20160621
  3. CORUNO [Concomitant]
     Active Substance: MOLSIDOMINE
     Indication: PRODUCT USED FOR UNKNOWN INDICATION
  4. DUODOPA [Suspect]
     Active Substance: CARBIDOPA\LEVODOPA
     Dosage: AM= 1ML; CD= 2.2 ML/H DURING 16 HRS; ED= 2 ML
     Route: 050
     Dates: end: 20131031
  5. DUODOPA [Suspect]
     Active Substance: CARBIDOPA\LEVODOPA
     Dosage: AM DOSE=1ML; CD=2.3ML/H DURING 16HRS;ED=2.0ML; ND=1.2ML/H DURING 8HRS
     Route: 050
     Dates: start: 20160621
  6. TEMESTA [Concomitant]
     Active Substance: LORAZEPAM
     Indication: PRODUCT USED FOR UNKNOWN INDICATION
  7. KREDEX [Concomitant]
     Active Substance: CARVEDILOL
     Indication: PRODUCT USED FOR UNKNOWN INDICATION
  8. ALDACTONE [Concomitant]
     Active Substance: SPIRONOLACTONE
     Indication: PRODUCT USED FOR UNKNOWN INDICATION
  9. BURINEX [Concomitant]
     Active Substance: BUMETANIDE
     Indication: PRODUCT USED FOR UNKNOWN INDICATION
  10. DUODOPA [Suspect]
     Active Substance: CARBIDOPA\LEVODOPA
     Dosage: AM= 1ML; CD= 2.2 ML/H DURING 16 HRS; ED= 2 ML
     Route: 050
     Dates: start: 20140204, end: 20140212
  11. DUODOPA [Suspect]
     Active Substance: CARBIDOPA\LEVODOPA
     Dosage: AM= 0 ML; CD= 2.2 ML/H DURING 16 HRS; ED= 2 ML
     Route: 050
     Dates: start: 20140212, end: 20160607
  12. LASIX [Concomitant]
     Active Substance: FUROSEMIDE
     Indication: PRODUCT USED FOR UNKNOWN INDICATION
  13. DUODOPA [Suspect]
     Active Substance: CARBIDOPA\LEVODOPA
     Indication: PARKINSON^S DISEASE
     Dosage: AM=4.5 ML; CD= 2.0 ML/H DURING 16 HRS; ED= 1 ML
     Route: 050
     Dates: start: 20130603, end: 20130604
  14. ELDEPRYL [Concomitant]
     Active Substance: SELEGILINE HYDROCHLORIDE
     Indication: PARKINSON^S DISEASE
     Route: 048
  15. CIPRAMIL [Concomitant]
     Active Substance: CITALOPRAM HYDROBROMIDE
     Indication: PRODUCT USED FOR UNKNOWN INDICATION
  16. MINITRAN [Concomitant]
     Active Substance: NITROGLYCERIN
     Indication: PRODUCT USED FOR UNKNOWN INDICATION

REACTIONS (6)
  - Cardiac arrest [Fatal]
  - Agitation [Unknown]
  - Anxiety [Unknown]
  - General physical health deterioration [Unknown]
  - Drug effect decreased [Recovering/Resolving]
  - Cardiac disorder [Unknown]

NARRATIVE: CASE EVENT DATE: 20160710
